FAERS Safety Report 25644679 (Version 2)
Quarter: 2025Q3

REPORT INFORMATION
  Report Type: Spontaneous
  Country: US (occurrence: US)
  Receive Date: 20250805
  Receipt Date: 20250905
  Transmission Date: 20251020
  Serious: Yes (Hospitalization, Other)
  Sender: PFIZER
  Company Number: US-PFIZER INC-202500156198

PATIENT
  Age: 60 Year
  Sex: Male
  Weight: 90.703 kg

DRUGS (6)
  1. DEPO-MEDROL [Suspect]
     Active Substance: METHYLPREDNISOLONE ACETATE
     Indication: Back pain
     Route: 008
     Dates: start: 20250617, end: 20250617
  2. GABAPENTIN [Concomitant]
     Active Substance: GABAPENTIN
  3. LIDOCAINE [Concomitant]
     Active Substance: LIDOCAINE
     Route: 061
  4. LISINOPRIL [Concomitant]
     Active Substance: LISINOPRIL
     Dosage: 40 MG AT A.M.
  5. SILDENAFIL [Concomitant]
     Active Substance: SILDENAFIL
  6. CYCLOBENZAPRINE [Concomitant]
     Active Substance: CYCLOBENZAPRINE
     Dosage: 10 MG @ H.S.

REACTIONS (6)
  - Intervertebral discitis [Recovering/Resolving]
  - Osteomyelitis [Recovering/Resolving]
  - Back pain [Recovering/Resolving]
  - Spinal claudication [Recovering/Resolving]
  - Off label use [Unknown]
  - Off label use [Unknown]

NARRATIVE: CASE EVENT DATE: 20250617
